FAERS Safety Report 6651437-1 (Version None)
Quarter: 2010Q1

REPORT INFORMATION
  Report Type: 
  Country: None (occurrence: None)
  Receive Date: 20100325
  Receipt Date: 20100315
  Transmission Date: 20100710
  Serious: Yes (Other)
  Sender: FDA-Public Use
  Company Number: BR-GENZYME-CLOF-1000896

PATIENT
  Age: 9 Year
  Sex: Female

DRUGS (4)
  1. CLOLAR [Suspect]
     Indication: ACUTE LYMPHOCYTIC LEUKAEMIA
     Dosage: UNK UNK, UNK
     Route: 065
     Dates: start: 20091201
  2. CLOLAR [Suspect]
     Dosage: UNK UNK, UNK
     Route: 065
     Dates: start: 20100101
  3. CLOLAR [Suspect]
     Dosage: UNK UNK, UNK
     Route: 065
     Dates: start: 20100301
  4. DIPHENHYDRAMINE HYDROCHLORIDE [Suspect]
     Indication: DRUG USE FOR UNKNOWN INDICATION

REACTIONS (6)
  - AGITATION [None]
  - APLASIA [None]
  - INSOMNIA [None]
  - LEUKOPENIA [None]
  - PALMAR-PLANTAR ERYTHRODYSAESTHESIA SYNDROME [None]
  - PANCYTOPENIA [None]
